FAERS Safety Report 23573255 (Version 3)
Quarter: 2024Q2

REPORT INFORMATION
  Report Type: Spontaneous
  Country: JP (occurrence: JP)
  Receive Date: 20240228
  Receipt Date: 20240520
  Transmission Date: 20240715
  Serious: Yes (Other)
  Sender: FDA-Public Use
  Company Number: JP-JNJFOC-20240274099

PATIENT
  Age: 93 Year
  Sex: Male

DRUGS (1)
  1. ERLEADA [Suspect]
     Active Substance: APALUTAMIDE
     Indication: Neoplasm malignant
     Route: 048

REACTIONS (3)
  - Aspiration [Unknown]
  - Dysphagia [Unknown]
  - Product size issue [Unknown]
